FAERS Safety Report 4673828-0 (Version None)
Quarter: 2005Q2

REPORT INFORMATION
  Report Type: 
  Country: None (occurrence: None)
  Receive Date: 20050524
  Receipt Date: 20050509
  Transmission Date: 20051028
  Serious: Yes (Hospitalization)
  Sender: FDA-Public Use
  Company Number: FR_050506372

PATIENT
  Age: 47 Year
  Sex: Female

DRUGS (2)
  1. GEMZAR [Suspect]
     Indication: GALLBLADDER CANCER
     Dosage: 1000  MG/M2/1 OTHER
     Dates: start: 20041001, end: 20041201
  2. GEMZAR [Suspect]
     Indication: OVARIAN CANCER
     Dosage: 1000  MG/M2/1 OTHER
     Dates: start: 20041001, end: 20041201

REACTIONS (1)
  - MILLER FISHER SYNDROME [None]
